FAERS Safety Report 18139573 (Version 5)
Quarter: 2021Q1

REPORT INFORMATION
  Report Type: Spontaneous
  Country: US (occurrence: US)
  Receive Date: 20200812
  Receipt Date: 20210303
  Transmission Date: 20210419
  Serious: Yes (Other)
  Sender: FDA-Public Use
  Company Number: US-PFIZER INC-2020307288

PATIENT
  Age: 82 Year
  Sex: Male
  Weight: 84 kg

DRUGS (3)
  1. LOSARTAN. [Concomitant]
     Active Substance: LOSARTAN
     Indication: HYPERTENSION
     Dosage: 50 MG, 1X/DAY
  2. CENTRUM MEN [Concomitant]
     Active Substance: MINERALS\VITAMINS
     Dosage: UNK , 1X/DAY
  3. LYRICA [Suspect]
     Active Substance: PREGABALIN
     Indication: NEUROPATHY PERIPHERAL
     Dosage: 50 MG, 2X/DAY

REACTIONS (3)
  - Vaccination site pain [Unknown]
  - Chills [Unknown]
  - Viral infection [Unknown]

NARRATIVE: CASE EVENT DATE: 20200809
